FAERS Safety Report 8503101-1 (Version None)
Quarter: 2012Q3

REPORT INFORMATION
  Report Type: 
  Country: None (occurrence: None)
  Receive Date: 20120711
  Receipt Date: 20120704
  Transmission Date: 20120928
  Serious: Yes (Life-Threatening, Hospitalization, Disabling, Other)
  Sender: FDA-Public Use
  Company Number: DE-ELI_LILLY_AND_COMPANY-DE201207001053

PATIENT
  Sex: Male

DRUGS (2)
  1. FOLIC ACID [Concomitant]
     Dosage: UNK
  2. FORTEO [Suspect]
     Indication: OSTEOPOROSIS
     Dosage: UNK, QD
     Route: 058
     Dates: start: 20120416

REACTIONS (5)
  - ABASIA [None]
  - EPILEPSY [None]
  - CEREBRAL HAEMORRHAGE [None]
  - APHASIA [None]
  - CEREBROVASCULAR ACCIDENT [None]
